FAERS Safety Report 15246711 (Version 1)
Quarter: 2018Q3

REPORT INFORMATION
  Report Type: Spontaneous
  Country: GB (occurrence: GB)
  Receive Date: 20180806
  Receipt Date: 20180806
  Transmission Date: 20181010
  Serious: Yes (Life-Threatening, Hospitalization, Other)
  Sender: FDA-Public Use
  Company Number: GB-ELI_LILLY_AND_COMPANY-GB201808001300

PATIENT
  Age: 61 Year
  Sex: Male

DRUGS (3)
  1. INSULIN [Concomitant]
     Active Substance: INSULIN NOS
     Indication: TYPE 2 DIABETES MELLITUS
     Dosage: UNK, UNKNOWN
     Route: 065
  2. TALTZ [Suspect]
     Active Substance: IXEKIZUMAB
     Dosage: 80 MG, EVERY TWO WEEKS
     Route: 058
     Dates: start: 20180628
  3. TALTZ [Suspect]
     Active Substance: IXEKIZUMAB
     Indication: PSORIASIS
     Dosage: 160 MG, LOADING DOSE AT WEEK 0
     Route: 058
     Dates: start: 20180614, end: 20180627

REACTIONS (3)
  - Muscular weakness [Unknown]
  - Lacunar stroke [Recovered/Resolved with Sequelae]
  - Facial paralysis [Unknown]

NARRATIVE: CASE EVENT DATE: 20180706
